FAERS Safety Report 7076135-4 (Version None)
Quarter: 2010Q4

REPORT INFORMATION
  Report Type: 
  Country: None (occurrence: None)
  Receive Date: 20101101
  Receipt Date: 20101020
  Transmission Date: 20110411
  Serious: Yes (Death)
  Sender: FDA-Public Use
  Company Number: NL-CELGENEUS-114-21880-10101951

PATIENT

DRUGS (1)
  1. REVLIMID [Suspect]
     Route: 048

REACTIONS (1)
  - DEATH [None]
